FAERS Safety Report 9067745 (Version 1)
Quarter: 2013Q1

REPORT INFORMATION
  Report Type: Spontaneous
  Country: US (occurrence: US)
  Receive Date: 20130206
  Receipt Date: 20130206
  Transmission Date: 20140127
  Serious: No
  Sender: FDA-Public Use
  Company Number: US-PFIZER INC-2013047612

PATIENT
  Age: 10 Year
  Sex: Female
  Weight: 60 kg

DRUGS (1)
  1. GEODON [Suspect]
     Dosage: 60 MG, UNK
     Route: 048

REACTIONS (2)
  - Drug administered to patient of inappropriate age [Unknown]
  - Vulvovaginal mycotic infection [Unknown]
